FAERS Safety Report 7088617-X (Version None)
Quarter: 2010Q4

REPORT INFORMATION
  Report Type: 
  Country: None (occurrence: None)
  Receive Date: 20101028
  Receipt Date: 20101012
  Transmission Date: 20110411
  Serious: Yes (Death)
  Sender: FDA-Public Use
  Company Number: UTC-001555

PATIENT
  Age: 76 Year
  Sex: Male

DRUGS (10)
  1. REMODULIN [Suspect]
     Dosage: 52.56 UG/KG (0.0365 UG/KG,1 IN 1 MIN),INTRAVENOUS
     Route: 042
     Dates: start: 20090311
  2. SPIRONOLACTONE [Concomitant]
  3. PAROXETINE HCL (PAROXETINE HYDROCHLORIDE) (TABLETS) [Concomitant]
  4. PRAVACHOL [Concomitant]
  5. JANUVIA (SITAGLIPTIN PHOSPHATE) (TABLETS) [Concomitant]
  6. ALBUTEROL [Suspect]
  7. COUMADIN [Concomitant]
  8. CARTIA XT (DILTIAZEM HYDROCHLORIDE) (CAPSULES) [Concomitant]
  9. MULTIVITAMIN (MULTIVITAMIN /00831701/) (TABLETS) [Concomitant]
  10. SPIRIVA [Concomitant]

REACTIONS (1)
  - DEATH [None]
